FAERS Safety Report 6266682-7 (Version None)
Quarter: 2009Q3

REPORT INFORMATION
  Report Type: 
  Country: None (occurrence: None)
  Receive Date: 20090710
  Receipt Date: 20090630
  Transmission Date: 20100115
  Serious: Yes (Hospitalization)
  Sender: FDA-Public Use
  Company Number: 8048587

PATIENT
  Age: 25 Year
  Sex: Male

DRUGS (1)
  1. KEPPRA [Suspect]
     Dosage: 4000 MG ONCE PO
     Route: 048
     Dates: start: 20090630, end: 20090630

REACTIONS (5)
  - CONVULSION [None]
  - SOMNOLENCE [None]
  - SUICIDE ATTEMPT [None]
  - VERTIGO [None]
  - VISUAL IMPAIRMENT [None]
